FAERS Safety Report 8805752 (Version 2)
Quarter: 2015Q2

REPORT INFORMATION
  Report Type: Report from Study
  Country: US (occurrence: US)
  Receive Date: 20120924
  Receipt Date: 20150623
  Transmission Date: 20150821
  Serious: Yes (Death)
  Sender: FDA-Public Use
  Company Number: US-ROCHE-1124973

PATIENT
  Age: 36 Year
  Sex: Female

DRUGS (10)
  1. NEULASTA [Concomitant]
     Active Substance: PEGFILGRASTIM
     Route: 058
  2. AVASTIN [Suspect]
     Active Substance: BEVACIZUMAB
     Indication: BREAST CANCER FEMALE
     Route: 042
  3. HERCEPTIN [Suspect]
     Active Substance: TRASTUZUMAB
     Indication: PRODUCT USED FOR UNKNOWN INDICATION
     Route: 065
  4. NAVELBINE [Concomitant]
     Active Substance: VINORELBINE TARTRATE
     Route: 065
  5. NEUMEGA [Concomitant]
     Active Substance: OPRELVEKIN
     Route: 058
  6. GEMZAR [Concomitant]
     Active Substance: GEMCITABINE HYDROCHLORIDE
     Route: 065
  7. ABRAXANE [Concomitant]
     Active Substance: PACLITAXEL
     Route: 065
  8. ZOMETA [Concomitant]
     Active Substance: ZOLEDRONIC ACID
     Route: 065
  9. PROCRIT [Concomitant]
     Active Substance: ERYTHROPOIETIN
     Dosage: 60000 U
     Route: 042
  10. HEPARIN [Concomitant]
     Active Substance: HEPARIN SODIUM
     Route: 065

REACTIONS (16)
  - Nausea [Unknown]
  - Off label use [Unknown]
  - Malaise [Unknown]
  - Oropharyngeal pain [Unknown]
  - Dyspnoea [Unknown]
  - Tachycardia [Unknown]
  - Tricuspid valve incompetence [Unknown]
  - Paraesthesia [Unknown]
  - Fatigue [Unknown]
  - Death [Fatal]
  - Pain [Unknown]
  - Wheezing [Unknown]
  - Hypoaesthesia [Unknown]
  - Asthenia [Unknown]
  - Hypoxia [Unknown]
  - Disease progression [Unknown]

NARRATIVE: CASE EVENT DATE: 20060629
